FAERS Safety Report 6418398-1 (Version None)
Quarter: 2009Q4

REPORT INFORMATION
  Report Type: 
  Country: None (occurrence: None)
  Receive Date: 20091026
  Receipt Date: 20091013
  Transmission Date: 20100525
  Serious: Yes (Life-Threatening, Hospitalization)
  Sender: FDA-Public Use
  Company Number: ADR37262009

PATIENT
  Age: 61 Year
  Sex: Male

DRUGS (8)
  1. SIMVASTATIN [Suspect]
     Indication: HYPERCHOLESTEROLAEMIA
     Dosage: 40 MG DAILY ORAL USE
     Route: 048
     Dates: start: 20050611
  2. ASPIRIN [Concomitant]
  3. BECLOMETHASON DIPROPIONATE [Concomitant]
  4. CLOPIDOGREL BISULFATE [Concomitant]
  5. DOXAZOSIN MESYALTE [Concomitant]
  6. NITROGLYCERIN [Concomitant]
  7. NICORANDIL [Concomitant]
  8. RAMIPRIL [Concomitant]

REACTIONS (1)
  - MYOCARDIAL INFARCTION [None]
